FAERS Safety Report 23769269 (Version 2)
Quarter: 2024Q2

REPORT INFORMATION
  Report Type: Spontaneous
  Country: JP (occurrence: JP)
  Receive Date: 20240422
  Receipt Date: 20240515
  Transmission Date: 20240716
  Serious: Yes (Death, Hospitalization, Other)
  Sender: FDA-Public Use
  Company Number: JP-DSJP-DSJ-2024-117327

PATIENT
  Age: 10 Decade
  Sex: Male
  Weight: 36 kg

DRUGS (2)
  1. EDOXABAN TOSYLATE [Suspect]
     Active Substance: EDOXABAN TOSYLATE
     Indication: Atrial fibrillation
     Dosage: 30 MG, QD
     Route: 048
  2. LASIX [Concomitant]
     Active Substance: FUROSEMIDE
     Indication: Dyspnoea
     Dosage: 60MG/DAY
     Route: 048

REACTIONS (9)
  - Cerebral haematoma [Unknown]
  - Cardiac failure [Unknown]
  - Hypokalaemia [Unknown]
  - Hypophagia [Unknown]
  - Asthenia [Fatal]
  - Faeces discoloured [Unknown]
  - Restlessness [Unknown]
  - Fall [Unknown]
  - Cryptococcosis [Unknown]
